FAERS Safety Report 12459830 (Version 3)
Quarter: 2016Q3

REPORT INFORMATION
  Report Type: Spontaneous
  Country: ET (occurrence: ET)
  Receive Date: 20160613
  Receipt Date: 20160809
  Transmission Date: 20161109
  Serious: Yes (Death)
  Sender: FDA-Public Use
  Company Number: ET-PFIZER INC-2016288337

PATIENT
  Age: 60 Year
  Sex: Female

DRUGS (1)
  1. ZITHROMAX [Suspect]
     Active Substance: AZITHROMYCIN DIHYDRATE
     Indication: PROPHYLAXIS
     Dosage: 1 G (4 TABLETS), STAT (AT ONCE) EARLY IN THE MORNING
     Route: 048
     Dates: start: 20160605, end: 20160605

REACTIONS (1)
  - Death [Fatal]

NARRATIVE: CASE EVENT DATE: 20160605
